FAERS Safety Report 9378185 (Version 1)
Quarter: 2013Q3

REPORT INFORMATION
  Report Type: Spontaneous
  Country: JP (occurrence: JP)
  Receive Date: 20130701
  Receipt Date: 20130701
  Transmission Date: 20140515
  Serious: Yes (Other)
  Sender: FDA-Public Use
  Company Number: JP-GLAXOSMITHKLINE-B0903981A

PATIENT
  Age: 29 Year
  Sex: Male

DRUGS (6)
  1. LAMICTAL [Suspect]
     Indication: PARTIAL SEIZURES
     Dosage: 25MG EVERY 3 DAYS
     Route: 048
     Dates: start: 20121015
  2. LAMICTAL [Suspect]
     Indication: PARTIAL SEIZURES
     Route: 048
     Dates: end: 20130602
  3. LAMICTAL [Suspect]
     Indication: PARTIAL SEIZURES
     Route: 048
     Dates: start: 20130603, end: 201306
  4. CARBAMAZEPINE [Concomitant]
     Route: 048
  5. FLUNITRAZEPAM [Concomitant]
     Route: 065
  6. RISPERIDONE [Concomitant]
     Route: 065

REACTIONS (2)
  - Hypersensitivity vasculitis [Recovered/Resolved]
  - Rash [Recovered/Resolved]
